FAERS Safety Report 6042341-0 (Version None)
Quarter: 2009Q1

REPORT INFORMATION
  Report Type: 
  Country: None (occurrence: None)
  Receive Date: 20090116
  Receipt Date: 20090107
  Transmission Date: 20090719
  Serious: Yes (Other)
  Sender: FDA-Public Use
  Company Number: US-PFIZER INC-2009153403

PATIENT
  Sex: Male
  Weight: 88.435 kg

DRUGS (4)
  1. LYRICA [Suspect]
     Indication: PAIN IN EXTREMITY
     Dosage: 150 MG, 2X/DAY
     Dates: start: 20080101
  2. LYRICA [Suspect]
     Indication: ARTHRALGIA
  3. NORVASC [Suspect]
     Indication: BLOOD PRESSURE
     Dosage: 10 MG, 1X/DAY
  4. FOSINOPRIL SODIUM [Concomitant]
     Dosage: 20 MG, UNK

REACTIONS (13)
  - ARTHRITIS [None]
  - CATARACT OPERATION [None]
  - DISTURBANCE IN ATTENTION [None]
  - DYSKINESIA [None]
  - ECCHYMOSIS [None]
  - HYPERTENSION [None]
  - INSOMNIA [None]
  - JOINT INJURY [None]
  - MALAISE [None]
  - TREMOR [None]
  - VISION BLURRED [None]
  - VISUAL IMPAIRMENT [None]
  - WITHDRAWAL SYNDROME [None]
